FAERS Safety Report 11994511 (Version 1)
Quarter: 2016Q1

REPORT INFORMATION
  Report Type: Spontaneous
  Country: US (occurrence: US)
  Receive Date: 20160203
  Receipt Date: 20160203
  Transmission Date: 20160526
  Serious: No
  Sender: FDA-Public Use
  Company Number: US-UCBSA-2015034605

PATIENT
  Sex: Male

DRUGS (1)
  1. KEPPRA [Suspect]
     Active Substance: LEVETIRACETAM
     Indication: SEIZURE
     Dosage: 500 MG, TWO AND A HALF TABLET TWICE DAILY

REACTIONS (5)
  - Wrong technique in product usage process [Unknown]
  - Diplopia [Not Recovered/Not Resolved]
  - Seizure [Not Recovered/Not Resolved]
  - Influenza [Not Recovered/Not Resolved]
  - Memory impairment [Not Recovered/Not Resolved]
